FAERS Safety Report 7457607-7 (Version None)
Quarter: 2011Q2

REPORT INFORMATION
  Report Type: 
  Country: None (occurrence: None)
  Receive Date: 20110426
  Receipt Date: 20110413
  Transmission Date: 20111010
  Serious: Yes (Death, Hospitalization, Other)
  Sender: FDA-Public Use
  Company Number: US-JNJFOC-20110401913

PATIENT
  Age: 66 Year
  Sex: Male
  Weight: 68.1 kg

DRUGS (30)
  1. THIAMINE [Concomitant]
  2. GUAIFENESIN/DEXTROMETORPHAN (TUSSIN DM) [Concomitant]
  3. ZINC OXIDE [Concomitant]
  4. PROCHLORPERAZINE TAB [Concomitant]
  5. ESOMEPRAZOLE MAGNESIUM [Concomitant]
  6. QUINAPRIL [Concomitant]
  7. LOPERAMIDE [Concomitant]
  8. SENNA (SENNA ALEXANDRINA) [Concomitant]
  9. BEXAROTENE (BEXAROTENE) UNSPECIFIED [Suspect]
     Indication: ACUTE MYELOID LEUKAEMIA
     Dosage: 200 MG/M2, ORAL
     Route: 048
     Dates: start: 20110323, end: 20110323
  10. CALCIUM CARBONATE [Concomitant]
  11. ACYCLOVIR [Concomitant]
  12. CEFEPIME [Concomitant]
  13. ACETAMINOPHEN [Concomitant]
  14. BACITRACIN W/NEOMYCIN/POLYMIXIN (NEOSPORIN) [Concomitant]
  15. MINERAL OIL W/PETROLATUM (OCULAR LUBRICANT) [Concomitant]
  16. ALLOPURINOL [Concomitant]
  17. POLYVINYL ALCOHOL [Concomitant]
  18. SALINE DROPS (OTHER NASAL PREPARATIONS) [Concomitant]
  19. FUROSIDE [Concomitant]
  20. METOPROLOL SICCINATE EXTENDED RELEASE (METOPROLOL SUCCINATE) [Concomitant]
  21. VISCOUS LIDOCAINE (LIDOCAINE HYDROCHLORIDE) [Concomitant]
  22. MALLOX (ALUDROX) [Concomitant]
  23. PRAMOXINE HYDROCHLORIDE [Concomitant]
  24. DACOGEN [Suspect]
     Indication: ACUTE MYELOID LEUKAEMIA
     Dosage: ORAL
     Route: 048
  25. LOVASTATIN [Concomitant]
  26. ALBUTEROL IPRATROPIUM (SALBUTAMOL/WIPRATROPIUM) [Concomitant]
  27. DIPHENHYDRAMINE HCL [Concomitant]
  28. CYANOCOBALAMIN [Concomitant]
  29. FOLIC ACID [Concomitant]
  30. SODIUM CHLORIDE [Concomitant]

REACTIONS (14)
  - SHOCK [None]
  - DELIRIUM TREMENS [None]
  - CONFUSIONAL STATE [None]
  - SMALL INTESTINAL OBSTRUCTION [None]
  - BACK PAIN [None]
  - RENAL FAILURE ACUTE [None]
  - FALL [None]
  - MUSCULOSKELETAL PAIN [None]
  - VOMITING [None]
  - RESPIRATORY FAILURE [None]
  - PNEUMONIA ASPIRATION [None]
  - DIARRHOEA [None]
  - CONTINUOUS HAEMODIAFILTRATION [None]
  - SEPSIS [None]
